FAERS Safety Report 5989701-1 (Version None)
Quarter: 2008Q4

REPORT INFORMATION
  Report Type: 
  Country: None (occurrence: None)
  Receive Date: 20081210
  Receipt Date: 20081203
  Transmission Date: 20090506
  Serious: Yes (Other)
  Sender: FDA-Public Use
  Company Number: US-B.I. PHARMACEUTICALS,INC./RIDGEFIELD-2008-DE-07414GD

PATIENT
  Age: 81 Year
  Sex: Female

DRUGS (5)
  1. CLONIDINE [Suspect]
     Indication: HYPERTENSION
     Dosage: .4MG
     Route: 062
  2. AMLODIPINE [Suspect]
     Indication: HYPERTENSION
     Dosage: 10MG
  3. DOXAZOSIN MESYLATE [Suspect]
     Indication: HYPERTENSION
     Dosage: 2MG
  4. LISINOPRIL [Suspect]
     Indication: HYPERTENSION
     Dosage: 2.5MG
  5. VERAPAMIL [Suspect]
     Indication: HYPERTENSION
     Dosage: 480MG

REACTIONS (1)
  - DRUG INEFFECTIVE [None]
